FAERS Safety Report 6504187-6 (Version None)
Quarter: 2009Q4

REPORT INFORMATION
  Report Type: 
  Country: None (occurrence: None)
  Receive Date: 20091217
  Receipt Date: 20091113
  Transmission Date: 20100525
  Serious: No
  Sender: FDA-Public Use
  Company Number: DE-ROCHE-674928

PATIENT
  Weight: 33 kg

DRUGS (2)
  1. TAMIFLU [Suspect]
     Indication: DRUG USE FOR UNKNOWN INDICATION
     Dosage: OVERDOSE
     Route: 065
     Dates: start: 20091112, end: 20091112
  2. TAMIFLU [Suspect]
     Route: 065

REACTIONS (2)
  - NO ADVERSE EVENT [None]
  - OVERDOSE [None]
